FAERS Safety Report 9055554 (Version 1)
Quarter: 2013Q1

REPORT INFORMATION
  Report Type: Report from Study
  Country: DE (occurrence: DE)
  Receive Date: 20130206
  Receipt Date: 20130206
  Transmission Date: 20140127
  Serious: Yes (Hospitalization)
  Sender: FDA-Public Use
  Company Number: DE-UCBSA-077415

PATIENT
  Sex: Female

DRUGS (3)
  1. CERTOLIZUMAB PEGOL [Suspect]
     Indication: RHEUMATOID ARTHRITIS
     Dosage: AS USED: 200 MG
     Route: 058
     Dates: start: 201008, end: 201011
  2. ADALIMUMAB [Suspect]
     Dosage: 40 MG
     Dates: start: 201011, end: 201112
  3. MTX [Concomitant]
     Dosage: 10.0

REACTIONS (1)
  - Psychotic disorder [Unknown]
